FAERS Safety Report 26112425 (Version 1)
Quarter: 2025Q4

REPORT INFORMATION
  Report Type: Spontaneous
  Country: CN (occurrence: CN)
  Receive Date: 20251202
  Receipt Date: 20251202
  Transmission Date: 20260117
  Serious: Yes (Hospitalization)
  Sender: MERCK SHARP & DOHME LLC
  Company Number: CN-009507513-2355946

PATIENT
  Age: 41 Year
  Sex: Male

DRUGS (3)
  1. PEMBROLIZUMAB [Suspect]
     Active Substance: PEMBROLIZUMAB
     Indication: Malignant connective tissue neoplasm
     Route: 041
     Dates: start: 20251029, end: 20251105
  2. CATEQUENTINIB [Suspect]
     Active Substance: CATEQUENTINIB
     Indication: Malignant connective tissue neoplasm
     Route: 050
     Dates: start: 2025
  3. TAZEMETOSTAT [Suspect]
     Active Substance: TAZEMETOSTAT
     Indication: Malignant connective tissue neoplasm
     Route: 065
     Dates: start: 2025

REACTIONS (3)
  - Ketoacidosis [Recovering/Resolving]
  - Product use in unapproved indication [Unknown]
  - Henoch-Schonlein purpura [Recovering/Resolving]

NARRATIVE: CASE EVENT DATE: 20251029
